FAERS Safety Report 8918110 (Version 3)
Quarter: 2012Q4

REPORT INFORMATION
  Report Type: Report from Study
  Country: US (occurrence: US)
  Receive Date: 20121120
  Receipt Date: 20121203
  Transmission Date: 20130627
  Serious: Yes (Hospitalization)
  Sender: FDA-Public Use
  Company Number: US-JNJFOC-20121107835

PATIENT
  Age: 15 Year
  Sex: Female
  Weight: 40.5 kg

DRUGS (14)
  1. REMICADE [Suspect]
     Indication: CROHN^S DISEASE
     Route: 042
  2. TRAMADOL [Suspect]
     Indication: PRODUCT USED FOR UNKNOWN INDICATION
  3. ACETAMINOPHEN [Suspect]
  4. ACETAMINOPHEN [Suspect]
     Indication: PRODUCT USED FOR UNKNOWN INDICATION
  5. METHOTREXATE [Suspect]
     Indication: PRODUCT USED FOR UNKNOWN INDICATION
  6. HUMIRA [Concomitant]
     Dates: start: 20110924
  7. NEXIUM [Concomitant]
  8. CALCIUM CARBONATE [Concomitant]
  9. CHOLECALCIFEROL [Concomitant]
  10. FOLIC ACID [Concomitant]
  11. ONDANSETRON [Concomitant]
  12. CLARITIN [Concomitant]
  13. OXYCODONE [Concomitant]
  14. VITAMINS NOS [Concomitant]

REACTIONS (1)
  - Vomiting [Recovered/Resolved]
